FAERS Safety Report 8487353-2 (Version None)
Quarter: 2012Q2

REPORT INFORMATION
  Report Type: 
  Country: None (occurrence: None)
  Receive Date: 20120628
  Receipt Date: 20120628
  Transmission Date: 20120825
  Serious: No
  Sender: FDA-Public Use
  Company Number: None

PATIENT
  Age: 60 Year
  Sex: Female
  Weight: 116.5744 kg

DRUGS (1)
  1. CLONIDINE HCL [Suspect]
     Indication: HYPERTENSION
     Dosage: 1 TABLET TWICE DAILY ORAL
     Route: 048
     Dates: start: 20110706, end: 20110901

REACTIONS (1)
  - GASTROINTESTINAL HYPOMOTILITY [None]
